FAERS Safety Report 11105553 (Version 2)
Quarter: 2015Q2

REPORT INFORMATION
  Report Type: Report from Study
  Country: US (occurrence: US)
  Receive Date: 20150512
  Receipt Date: 20150519
  Transmission Date: 20150821
  Serious: No
  Sender: FDA-Public Use
  Company Number: US-ALEXION-A201501601

PATIENT

DRUGS (1)
  1. SOLIRIS [Suspect]
     Active Substance: ECULIZUMAB
     Indication: HAEMOLYTIC URAEMIC SYNDROME
     Dosage: UNK
     Route: 042

REACTIONS (16)
  - Disturbance in attention [Unknown]
  - Nervousness [Not Recovered/Not Resolved]
  - Memory impairment [Unknown]
  - Mental disorder [Not Recovered/Not Resolved]
  - Skin discolouration [Not Recovered/Not Resolved]
  - Scab [Unknown]
  - Depression [Not Recovered/Not Resolved]
  - Condition aggravated [Not Recovered/Not Resolved]
  - Paronychia [Unknown]
  - Visual impairment [Unknown]
  - Skin infection [Unknown]
  - Anxiety [Not Recovered/Not Resolved]
  - Peripheral swelling [Recovered/Resolved]
  - Dermatillomania [Not Recovered/Not Resolved]
  - Hypoaesthesia [Unknown]
  - Pallor [Unknown]

NARRATIVE: CASE EVENT DATE: 20150426
